FAERS Safety Report 8007355-X (Version None)
Quarter: 2011Q4

REPORT INFORMATION
  Report Type: 
  Country: None (occurrence: None)
  Receive Date: 20111219
  Receipt Date: 20111212
  Transmission Date: 20120403
  Serious: Yes (Other)
  Sender: FDA-Public Use
  Company Number: 2011030445

PATIENT
  Age: 63 Year
  Sex: Male
  Weight: 83.9154 kg

DRUGS (18)
  1. PRASTERONE [Concomitant]
  2. HIZENTRA [Suspect]
     Indication: IMMUNODEFICIENCY COMMON VARIABLE
     Dosage: (12 G 1X/WEEK, (60 ML) 3-4 SITES OVER 1-2 HOURS SUBCUTANEOUS)
     Route: 058
     Dates: start: 20111018
  3. FLECANIDE (FLECAINIDE) [Concomitant]
  4. ACETAMINOPHEN [Concomitant]
  5. SUPER R-LIPOIC (THIOCTIC ACID) [Concomitant]
  6. VITAMIN DE (COLECALCIFEROL) [Concomitant]
  7. ACETYL L-CARNITIN (ACETYLCARNITINE) [Concomitant]
  8. WARFARIN SODIUM [Concomitant]
  9. L-TYROSINE (TYROSINE) [Concomitant]
  10. GUAIFENESIN [Concomitant]
  11. L-ARGININE (ARGININE HYDROCHLORIDE) [Concomitant]
  12. MULTIVITAMIN (DAILY MULTIVITAMIN) [Concomitant]
  13. ASCORBIC ACID [Concomitant]
  14. N-ACETYL L-CYSTEIN (ACETYLCYSTEINE) [Concomitant]
  15. CO-Q10 (UBIDECARENONE) [Concomitant]
  16. HIZENTRA [Suspect]
     Indication: IMMUNODEFICIENCY COMMON VARIABLE
     Dosage: SUBCUTANEOUS
     Route: 058
     Dates: start: 20111018
  17. CAL-MAG (CAL-MAG) [Concomitant]
  18. NIACIN [Concomitant]

REACTIONS (2)
  - COGNITIVE DISORDER [None]
  - MENTAL IMPAIRMENT [None]
